FAERS Safety Report 4483694-4 (Version None)
Quarter: 2004Q4

REPORT INFORMATION
  Report Type: 
  Country: None (occurrence: None)
  Receive Date: 20041020
  Receipt Date: 20041007
  Transmission Date: 20050328
  Serious: Yes (Disabling, Other)
  Sender: FDA-Public Use
  Company Number: 2004076698

PATIENT
  Age: 73 Year
  Sex: Female
  Weight: 77.1115 kg

DRUGS (3)
  1. LIPITOR [Suspect]
     Indication: BLOOD CHOLESTEROL INCREASED
     Dosage: ORAL
     Route: 048
     Dates: start: 20040101, end: 20040101
  2. ANTIHYPERTENSIVES         (ANTIHYPERTENSIVES) [Concomitant]
  3. GLIPIZIDE [Concomitant]

REACTIONS (6)
  - ABASIA [None]
  - BACK PAIN [None]
  - BEDRIDDEN [None]
  - PAIN [None]
  - PAIN IN EXTREMITY [None]
  - URINARY INCONTINENCE [None]
